FAERS Safety Report 6744378-2 (Version None)
Quarter: 2010Q2

REPORT INFORMATION
  Report Type: 
  Country: None (occurrence: None)
  Receive Date: 20100527
  Receipt Date: 20100514
  Transmission Date: 20101027
  Serious: Yes (Other)
  Sender: FDA-Public Use
  Company Number: US-PFIZER INC-2010042326

PATIENT
  Sex: Female
  Weight: 59 kg

DRUGS (2)
  1. XANAX [Suspect]
     Indication: ANXIETY
     Dosage: 4 MG, 1X/DAY
     Dates: end: 20100101
  2. ZOLOFT [Suspect]
     Indication: DEPRESSION
     Dosage: UNK
     Dates: start: 20100101

REACTIONS (3)
  - CONVULSION [None]
  - DRUG ABUSE [None]
  - WITHDRAWAL SYNDROME [None]
